FAERS Safety Report 5278910-5 (Version None)
Quarter: 2007Q1

REPORT INFORMATION
  Report Type: 
  Country: None (occurrence: None)
  Receive Date: 20070328
  Receipt Date: 20070319
  Transmission Date: 20070707
  Serious: Yes (Other)
  Sender: FDA-Public Use
  Company Number: GB-ROCHE-486602

PATIENT
  Age: 75 Year
  Sex: Male
  Weight: 105 kg

DRUGS (12)
  1. XENICAL [Suspect]
     Indication: DRUG USE FOR UNKNOWN INDICATION
     Route: 048
     Dates: start: 20060707
  2. SALMETEROL [Concomitant]
  3. SALBUTAMOL [Concomitant]
  4. CARBOCISTEINE [Concomitant]
  5. ACETAMINOPHEN [Concomitant]
  6. ASPIRIN [Concomitant]
  7. BENDROFLUMETHIAZIDE [Concomitant]
  8. FUROSEMIDE [Concomitant]
  9. LISINOPRIL [Concomitant]
  10. PHYLLOCONTIN [Concomitant]
  11. VENTOLIN [Concomitant]
  12. TIOTROPIUM [Concomitant]

REACTIONS (1)
  - GLOMERULAR FILTRATION RATE DECREASED [None]
